FAERS Safety Report 8554492-7 (Version None)
Quarter: 2012Q3

REPORT INFORMATION
  Report Type: 
  Country: None (occurrence: None)
  Receive Date: 20120731
  Receipt Date: 20120711
  Transmission Date: 20120928
  Serious: No
  Sender: FDA-Public Use
  Company Number: US-ASTRAZENECA-2012SE48136

PATIENT
  Age: 61 Year
  Sex: Male
  Weight: 107.5 kg

DRUGS (1)
  1. BRILINTA [Suspect]
     Route: 048
     Dates: start: 20120511

REACTIONS (1)
  - NO THERAPEUTIC RESPONSE [None]
